FAERS Safety Report 5323193-0 (Version None)
Quarter: 2007Q2

REPORT INFORMATION
  Report Type: 
  Country: None (occurrence: None)
  Receive Date: 20070220
  Receipt Date: 20061114
  Transmission Date: 20071010
  Serious: No
  Sender: FDA-Public Use
  Company Number: WAES 0611USA04468

PATIENT
  Age: 50 Year
  Sex: Female

DRUGS (2)
  1. JANUVIA [Suspect]
     Indication: DIABETES MELLITUS NON-INSULIN-DEPENDENT
     Dosage: PO
     Route: 048
     Dates: start: 20061106, end: 20061113
  2. CRESTOR [Concomitant]

REACTIONS (2)
  - FLUSHING [None]
  - HOT FLUSH [None]
